FAERS Safety Report 25539580 (Version 1)
Quarter: 2025Q3

REPORT INFORMATION
  Report Type: Spontaneous
  Country: US (occurrence: None)
  Receive Date: 20250710
  Receipt Date: 20250710
  Transmission Date: 20251021
  Serious: Yes (Death)
  Sender: FDA-CTU
  Company Number: None

PATIENT
  Sex: Female

DRUGS (11)
  1. SIMLANDI [Suspect]
     Active Substance: ADALIMUMAB-RYVK
     Dosage: FREQUENCY : WEEKLY;?
     Route: 058
     Dates: start: 20250306, end: 202507
  2. ACYCLOVIR CAP 200MG [Concomitant]
  3. AZATHIOPRINE [Concomitant]
     Active Substance: AZATHIOPRINE
  4. CLOBETASOL PROPIONATE [Concomitant]
     Active Substance: CLOBETASOL PROPIONATE
  5. ELURYNG MIS [Concomitant]
  6. FLUTICASONE [Concomitant]
     Active Substance: FLUTICASONE
  7. HUMIRA [Concomitant]
     Active Substance: ADALIMUMAB
  8. HYDROCORT CRE 2.5% [Concomitant]
  9. IMURAN [Concomitant]
     Active Substance: AZATHIOPRINE
  10. IRON TAB 18MG [Concomitant]
  11. KENALOG-40 INJ 40MG/ML [Concomitant]

REACTIONS (1)
  - Death [None]
